FAERS Safety Report 8451723 (Version 2)
Quarter: 2012Q4

REPORT INFORMATION
  Report Type: 
  Country: FR (occurrence: FR)
  Receive Date: 20120309
  Receipt Date: 20120904
  Transmission Date: 20130627
  Serious: Yes (Hospitalization)
  Sender: FDA-Public Use
  Company Number: FR-EISAI INC-E3810-05347-SPO-FR

PATIENT
  Age: 90 Year
  Sex: Female

DRUGS (12)
  1. PARIET (RABEPRAZOLE) [Suspect]
     Route: 048
     Dates: end: 20120107
  2. THALIDOMIDE [Suspect]
     Indication: MULTIPLE MYELOMA
     Route: 048
     Dates: start: 20110617, end: 20120107
  3. LOXEN [Suspect]
     Route: 048
     Dates: end: 20120107
  4. POTASSIUM CHLORIDE [Suspect]
     Route: 048
     Dates: end: 20120107
  5. ASPEGIC [Suspect]
     Route: 048
     Dates: end: 20120107
  6. DEDROGYL [Suspect]
     Route: 048
     Dates: end: 20120107
  7. TRANSIPEG [Suspect]
     Route: 048
     Dates: end: 20120107
  8. COVERSYL [Concomitant]
     Route: 048
  9. SOTALEX [Concomitant]
     Route: 048
  10. EUPRESSYL [Concomitant]
     Route: 048
  11. ZYLORIC [Concomitant]
     Route: 048
  12. ZOLPIDEM [Concomitant]
     Route: 048

REACTIONS (2)
  - Deep vein thrombosis [Recovering/Resolving]
  - Platelet count decreased [None]
